FAERS Safety Report 10715837 (Version 3)
Quarter: 2015Q1

REPORT INFORMATION
  Report Type: Spontaneous
  Country: US (occurrence: US)
  Receive Date: 20150116
  Receipt Date: 20150216
  Transmission Date: 20150721
  Serious: Yes (Hospitalization, Other)
  Sender: FDA-Public Use
  Company Number: US-MERCK-1501USA005024

PATIENT
  Age: 46 Year
  Sex: Female

DRUGS (1)
  1. KEYTRUDA [Suspect]
     Active Substance: PEMBROLIZUMAB
     Indication: MALIGNANT MELANOMA
     Dosage: 2 DOSES

REACTIONS (2)
  - Seizure [Not Recovered/Not Resolved]
  - Brain neoplasm [Unknown]

NARRATIVE: CASE EVENT DATE: 20141230
